APPROVED DRUG PRODUCT: TESTOSTERONE ENANTHATE
Active Ingredient: TESTOSTERONE ENANTHATE
Strength: 200MG/ML
Dosage Form/Route: INJECTABLE;INJECTION
Application: A091120 | Product #001 | TE Code: AO
Applicant: HIKMA FARMACEUTICA PORTUGAL SA
Approved: Sep 18, 2012 | RLD: No | RS: Yes | Type: RX